FAERS Safety Report 4597140-3 (Version None)
Quarter: 2005Q1

REPORT INFORMATION
  Report Type: 
  Country: None (occurrence: None)
  Receive Date: 20050301
  Receipt Date: 20050218
  Transmission Date: 20050727
  Serious: Yes (Hospitalization)
  Sender: FDA-Public Use
  Company Number: 2005-00634

PATIENT
  Age: 84 Year
  Sex: Female

DRUGS (2)
  1. ALBUTEROL [Suspect]
     Indication: CHRONIC OBSTRUCTIVE PULMONARY DISEASE
     Dosage: 5 MG, Q2H, RESPIRATORY
     Route: 055
  2. IPRATROPIUM BROMIDE (IPRATROPIUM BROMIDE0 [Concomitant]

REACTIONS (1)
  - ACUTE MYOCARDIAL INFARCTION [None]
